FAERS Safety Report 7865775-8 (Version None)
Quarter: 2011Q4

REPORT INFORMATION
  Report Type: 
  Country: None (occurrence: None)
  Receive Date: 20111028
  Receipt Date: 20110221
  Transmission Date: 20120403
  Serious: No
  Sender: FDA-Public Use
  Company Number: US-GLAXOSMITHKLINE-A0914680A

PATIENT
  Sex: Female

DRUGS (8)
  1. ADVAIR DISKUS 100/50 [Suspect]
     Indication: ASTHMA
     Dosage: 1PUFF TWICE PER DAY
     Route: 055
     Dates: start: 20050101
  2. PRAZOSIN HCL [Suspect]
     Indication: HYPERTENSION
     Dosage: 5MG TWICE PER DAY
     Route: 048
     Dates: start: 20090101
  3. SINGULAIR [Suspect]
     Indication: ASTHMA
     Dosage: 1TAB PER DAY
     Route: 048
     Dates: start: 20050101
  4. FOSINOPRIL SODIUM [Concomitant]
  5. DILTIAZEM HCL [Concomitant]
  6. VENTOLIN HFA [Concomitant]
  7. HYDROCHLOROTHIAZIDE [Suspect]
     Indication: HYPERTENSION
     Dosage: 25MG PER DAY
     Route: 048
     Dates: start: 20110202
  8. POTASSIUM [Concomitant]

REACTIONS (5)
  - ABDOMINAL DISCOMFORT [None]
  - ABDOMINAL DISTENSION [None]
  - ABASIA [None]
  - FALL [None]
  - ASTHENIA [None]
